FAERS Safety Report 5469861-1 (Version None)
Quarter: 2007Q3

REPORT INFORMATION
  Report Type: 
  Country: None (occurrence: None)
  Receive Date: 20070927
  Receipt Date: 20070914
  Transmission Date: 20080115
  Serious: Yes (Hospitalization)
  Sender: FDA-Public Use
  Company Number: JP-ELI_LILLY_AND_COMPANY-JP200709000784

PATIENT
  Age: 56 Year
  Sex: Female
  Weight: 58 kg

DRUGS (12)
  1. H6D-MC-LVGX DOUBLE-BLIND, EXTENSION STUD [Concomitant]
     Indication: PULMONARY HYPERTENSION
     Dates: start: 20070703
  2. TRACLEER [Suspect]
     Indication: PULMONARY HYPERTENSION
     Dosage: 125 MG, DAILY (1/D)
     Dates: start: 20060322
  3. WARFARIN SODIUM [Suspect]
     Dosage: 4 MG, DAILY (1/D)
     Dates: start: 20060427, end: 20070628
  4. WARFARIN [Concomitant]
     Dosage: 3 MG, DAILY (1/D)
     Dates: start: 20070629
  5. BISOPROLOL FUMARATE [Concomitant]
     Indication: PULMONARY HYPERTENSION
     Dates: start: 20041215
  6. DIART [Concomitant]
     Indication: PULMONARY HYPERTENSION
     Dates: start: 20041215
  7. ASPARA K [Concomitant]
     Indication: PULMONARY HYPERTENSION
     Dates: start: 20041214
  8. LIVALO [Concomitant]
     Dosage: UNK, UNK
     Dates: start: 20060528
  9. PREDONINE [Concomitant]
     Dosage: UNK, UNK
     Dates: start: 19980101
  10. SPIRONOLACTONE [Concomitant]
     Indication: PULMONARY HYPERTENSION
     Dates: start: 20070317
  11. ALLOZYM [Concomitant]
     Dates: start: 20070317
  12. BERAPROST SODIUM [Concomitant]
     Indication: PULMONARY HYPERTENSION
     Dates: start: 20050124

REACTIONS (1)
  - BREAST CANCER RECURRENT [None]
